FAERS Safety Report 6544138-1 (Version None)
Quarter: 2010Q1

REPORT INFORMATION
  Report Type: 
  Country: None (occurrence: None)
  Receive Date: 20100119
  Receipt Date: 20100119
  Transmission Date: 20100710
  Serious: Yes (Other)
  Sender: FDA-Public Use
  Company Number: None

PATIENT
  Age: 44 Year
  Sex: Female
  Weight: 61.2356 kg

DRUGS (2)
  1. ROLAIDS [Suspect]
     Indication: GASTROOESOPHAGEAL REFLUX DISEASE
     Dosage: 1 TABLET AS NEEDED PO
     Route: 048
     Dates: start: 20091220, end: 20100115
  2. ROLAIDS [Suspect]
     Indication: GASTROOESOPHAGEAL REFLUX DISEASE
     Dosage: 1 TABLET AS NEEDED PO
     Route: 048
     Dates: start: 20091220, end: 20100115

REACTIONS (4)
  - ABDOMINAL PAIN UPPER [None]
  - NAUSEA [None]
  - PRODUCT QUALITY ISSUE [None]
  - VOMITING [None]
